FAERS Safety Report 19208605 (Version 1)
Quarter: 2021Q2

REPORT INFORMATION
  Report Type: Spontaneous
  Country: US (occurrence: US)
  Receive Date: 20210504
  Receipt Date: 20210504
  Transmission Date: 20210717
  Serious: No
  Sender: FDA-Public Use
  Company Number: US-SA-2021SA143984

PATIENT
  Sex: Female

DRUGS (1)
  1. DUPIXENT [Suspect]
     Active Substance: DUPILUMAB
     Route: 003
     Dates: start: 20201223

REACTIONS (3)
  - Dry skin [Unknown]
  - Pruritus [Unknown]
  - Constipation [Recovered/Resolved]
